FAERS Safety Report 9165772 (Version 1)
Quarter: 2013Q1

REPORT INFORMATION
  Report Type: Spontaneous
  Country: US (occurrence: None)
  Receive Date: 20130228
  Receipt Date: 20130228
  Transmission Date: 20140127
  Serious: Yes (Hospitalization)
  Sender: FDA-Public Use
  Company Number: ACO_34359_2013

PATIENT
  Sex: Female
  Weight: 70.3 kg

DRUGS (1)
  1. AMPYRA (DALFAMPRIDINE) TABLET [Suspect]
     Indication: MULTIPLE SCLEROSIS
     Route: 048
     Dates: start: 2012, end: 201209

REACTIONS (3)
  - Pulmonary embolism [None]
  - Hip fracture [None]
  - Fall [None]
